FAERS Safety Report 13113279 (Version 2)
Quarter: 2017Q1

REPORT INFORMATION
  Report Type: Spontaneous
  Country: US (occurrence: US)
  Receive Date: 20170113
  Receipt Date: 20170308
  Transmission Date: 20170428
  Serious: Yes (Death)
  Sender: FDA-Public Use
  Company Number: US-UNITED THERAPEUTICS-UNT-2017-000254

PATIENT
  Sex: Female

DRUGS (1)
  1. ORENITRAM [Suspect]
     Active Substance: TREPROSTINIL
     Indication: PRODUCT USED FOR UNKNOWN INDICATION
     Dosage: 2.375 MG, TID
     Route: 048
     Dates: start: 20160412, end: 20161231

REACTIONS (2)
  - Death [Fatal]
  - Living in residential institution [Unknown]

NARRATIVE: CASE EVENT DATE: 201611
